FAERS Safety Report 26211816 (Version 1)
Quarter: 2025Q4

REPORT INFORMATION
  Report Type: Spontaneous
  Country: GB (occurrence: GB)
  Receive Date: 20251230
  Receipt Date: 20251230
  Transmission Date: 20260117
  Serious: Yes (Hospitalization)
  Sender: ALKEM
  Company Number: None

PATIENT
  Sex: Female

DRUGS (1)
  1. FOSFOMYCIN [Suspect]
     Active Substance: FOSFOMYCIN
     Indication: Cellulitis
     Dosage: UNK
     Route: 065
     Dates: start: 20251210, end: 20251215

REACTIONS (1)
  - Electrolyte imbalance [Recovering/Resolving]
